FAERS Safety Report 21741145 (Version 1)
Quarter: 2022Q4

REPORT INFORMATION
  Report Type: Spontaneous
  Country: US (occurrence: US)
  Receive Date: 20221216
  Receipt Date: 20221216
  Transmission Date: 20230113
  Serious: No
  Sender: FDA-Public Use
  Company Number: US-AVEO ONCOLOGY-2022-AVEO-US000473

PATIENT

DRUGS (3)
  1. FOTIVDA [Suspect]
     Active Substance: TIVOZANIB HYDROCHLORIDE
     Indication: Renal cancer
     Dosage: 1.34 MG, DAILY FOR 21 DAYS WITH 7 DAYS OFF (28-DAY CYCLE)
     Dates: start: 202208
  2. CABOMETYX [Suspect]
     Active Substance: CABOZANTINIB S-MALATE
     Indication: Renal cancer
     Dosage: 40 MG, DAILY
     Route: 048
     Dates: start: 20220218, end: 2022
  3. ZOMETA [Concomitant]
     Active Substance: ZOLEDRONIC ACID

REACTIONS (1)
  - Blood potassium decreased [Unknown]

NARRATIVE: CASE EVENT DATE: 20220801
